FAERS Safety Report 17951382 (Version 1)
Quarter: 2020Q2

REPORT INFORMATION
  Report Type: Report from Study
  Country: US (occurrence: US)
  Receive Date: 20200626
  Receipt Date: 20200626
  Transmission Date: 20200714
  Serious: Yes (Hospitalization)
  Sender: FDA-Public Use
  Company Number: US-BAYER-2020-085946

PATIENT
  Age: 65 Year
  Sex: Male

DRUGS (2)
  1. NEXAVAR [Suspect]
     Active Substance: SORAFENIB
     Indication: HEPATOCELLULAR CARCINOMA
     Dosage: 400 MG, BID
     Route: 048
     Dates: start: 20200512
  2. NEXAVAR [Suspect]
     Active Substance: SORAFENIB
     Indication: HEPATOCELLULAR CARCINOMA
     Dosage: 800 MG, BID
     Route: 048
     Dates: end: 20200611

REACTIONS (6)
  - Rectal haemorrhage [Unknown]
  - Off label use [None]
  - Musculoskeletal pain [Not Recovered/Not Resolved]
  - Confusional state [Unknown]
  - Food refusal [Unknown]
  - Nausea [Unknown]
